FAERS Safety Report 5521068-5 (Version None)
Quarter: 2007Q4

REPORT INFORMATION
  Report Type: 
  Country: None (occurrence: None)
  Receive Date: 20071115
  Receipt Date: 20071106
  Transmission Date: 20080405
  Serious: Yes (Hospitalization)
  Sender: FDA-Public Use
  Company Number: 2007US002738

PATIENT
  Age: 63 Year
  Sex: Female
  Weight: 60.7 kg

DRUGS (2)
  1. PROGRAF [Suspect]
     Indication: RENAL TRANSPLANT
     Dosage: 2.5 MG, BID, ORAL
     Route: 048
     Dates: start: 20051102
  2. CELLCEPT [Concomitant]

REACTIONS (1)
  - CHRONIC ALLOGRAFT NEPHROPATHY [None]
